FAERS Safety Report 15942319 (Version 4)
Quarter: 2019Q2

REPORT INFORMATION
  Report Type: Spontaneous
  Country: US (occurrence: US)
  Receive Date: 20190209
  Receipt Date: 20190415
  Transmission Date: 20190711
  Serious: Yes (Other)
  Sender: FDA-Public Use
  Company Number: US-ASTRAZENECA-2018SF14338

PATIENT
  Age: 885 Month
  Sex: Female
  Weight: 69.3 kg

DRUGS (15)
  1. OMEPRAZOLE. [Suspect]
     Active Substance: OMEPRAZOLE
     Indication: GASTROOESOPHAGEAL REFLUX DISEASE
     Route: 065
     Dates: start: 20160510, end: 20171105
  2. VENTOLIN [Concomitant]
     Active Substance: ALBUTEROL SULFATE
  3. METRONIDAZOLE. [Concomitant]
     Active Substance: METRONIDAZOLE
     Dates: start: 20160510
  4. PRILOSEC OTC [Suspect]
     Active Substance: OMEPRAZOLE MAGNESIUM
     Indication: GASTROOESOPHAGEAL REFLUX DISEASE
     Route: 048
     Dates: start: 20120101, end: 20161231
  5. MELOXICAM. [Concomitant]
     Active Substance: MELOXICAM
  6. PROMETHAZINE [Concomitant]
     Active Substance: PROMETHAZINE\PROMETHAZINE HYDROCHLORIDE
  7. ATORVASTATIN [Concomitant]
     Active Substance: ATORVASTATIN
  8. LOSARTAN. [Concomitant]
     Active Substance: LOSARTAN
     Dates: start: 20160510
  9. HYDROCODONE-ACETAMINOPHEN [Concomitant]
     Active Substance: ACETAMINOPHEN\HYDROCODONE
  10. LISINOPRIL. [Concomitant]
     Active Substance: LISINOPRIL
  11. OMEPRAZOLE. [Concomitant]
     Active Substance: OMEPRAZOLE
     Dates: start: 20160510
  12. DIAZEPAM. [Concomitant]
     Active Substance: DIAZEPAM
     Dates: start: 20160510
  13. CHLORTHALIDONE. [Concomitant]
     Active Substance: CHLORTHALIDONE
     Dates: start: 20160510
  14. CYMBALTA [Concomitant]
     Active Substance: DULOXETINE HYDROCHLORIDE
  15. DULOXETINE. [Concomitant]
     Active Substance: DULOXETINE

REACTIONS (3)
  - Acute kidney injury [Not Recovered/Not Resolved]
  - Renal injury [Unknown]
  - Chronic kidney disease [Not Recovered/Not Resolved]

NARRATIVE: CASE EVENT DATE: 201507
